FAERS Safety Report 7893445-9 (Version None)
Quarter: 2011Q4

REPORT INFORMATION
  Report Type: 
  Country: None (occurrence: None)
  Receive Date: 20111104
  Receipt Date: 20111021
  Transmission Date: 20120403
  Serious: Yes (Hospitalization, Other)
  Sender: FDA-Public Use
  Company Number: US-ROCHE-1006532

PATIENT
  Sex: Male
  Weight: 71 kg

DRUGS (18)
  1. JANUVIA [Concomitant]
  2. FOSAMAX [Concomitant]
  3. RITUXIMAB [Suspect]
     Indication: NON-HODGKIN'S LYMPHOMA
  4. SODIUM BICARBONATE [Concomitant]
  5. PROGRAF [Suspect]
     Indication: HEART TRANSPLANT
     Route: 048
     Dates: start: 20070131, end: 20100804
  6. PROGRAF [Suspect]
     Route: 048
     Dates: start: 20100805, end: 20100908
  7. MYCOPHENOLATE MOFETIL (CELLCEPT) [Concomitant]
  8. PRILOSEC [Concomitant]
  9. PROGRAF [Suspect]
     Route: 048
     Dates: start: 20100909, end: 20101006
  10. PREDNISONE [Concomitant]
  11. PEPCID [Concomitant]
  12. EPOGEN [Concomitant]
  13. CATAPRES [Concomitant]
  14. PRAVACHOL [Concomitant]
  15. SIROLIMUS [Suspect]
     Indication: PRODUCT USED FOR UNKNOWN INDICATION
  16. CYCLOSPORINE [Concomitant]
  17. FEOSOL [Concomitant]
  18. MULTI-VITAMIN [Concomitant]

REACTIONS (42)
  - DEHYDRATION [None]
  - IMMUNOSUPPRESSION [None]
  - CARDIOVASCULAR DISORDER [None]
  - OSTEOPENIA [None]
  - SUBDURAL HAEMORRHAGE [None]
  - ARTHRITIS BACTERIAL [None]
  - RENAL FAILURE [None]
  - DECREASED APPETITE [None]
  - RENAL FAILURE ACUTE [None]
  - GENITAL HERPES [None]
  - LYMPHOPENIA [None]
  - BONE NEOPLASM MALIGNANT [None]
  - NORMOCHROMIC NORMOCYTIC ANAEMIA [None]
  - DIVERTICULUM [None]
  - CARDIAC FAILURE CONGESTIVE [None]
  - ABDOMINAL HERNIA REPAIR [None]
  - HEADACHE [None]
  - ANEURYSM [None]
  - ANAEMIA MACROCYTIC [None]
  - HYPERLIPIDAEMIA [None]
  - RENAL FAILURE CHRONIC [None]
  - TYPE 2 DIABETES MELLITUS [None]
  - PULMONARY TOXICITY [None]
  - POSTOPERATIVE WOUND INFECTION [None]
  - CARPAL TUNNEL DECOMPRESSION [None]
  - SYNCOPE [None]
  - CARDIAC PACEMAKER INSERTION [None]
  - TREMOR [None]
  - HERNIA REPAIR [None]
  - INTERSTITIAL LUNG DISEASE [None]
  - SEPSIS [None]
  - INFECTION [None]
  - SKULL FRACTURE [None]
  - B-CELL LYMPHOMA [None]
  - NEUTROPENIA [None]
  - IMPLANTABLE DEFIBRILLATOR INSERTION [None]
  - SPLENOMEGALY [None]
  - CORONARY ARTERY DISEASE [None]
  - VIITH NERVE PARALYSIS [None]
  - GASTRITIS [None]
  - FALL [None]
  - RENAL MASS [None]
